FAERS Safety Report 19659434 (Version 2)
Quarter: 2021Q3

REPORT INFORMATION
  Report Type: Report from Study
  Country: US (occurrence: US)
  Receive Date: 20210805
  Receipt Date: 20210812
  Transmission Date: 20211014
  Serious: Yes (Other)
  Sender: FDA-Public Use
  Company Number: US-INSMED INCORPORATED-US-INS-21-00189

PATIENT
  Age: 60 Year
  Sex: Female

DRUGS (1)
  1. ARIKAYCE [Suspect]
     Active Substance: AMIKACIN
     Indication: MYCOBACTERIUM AVIUM COMPLEX INFECTION
     Dosage: 590 MILLIGRAM
     Route: 055
     Dates: start: 20210122

REACTIONS (8)
  - Dysphonia [Unknown]
  - Product dose omission issue [Unknown]
  - Choking [Unknown]
  - Throat tightness [Unknown]
  - Adverse drug reaction [Unknown]
  - Cough [Unknown]
  - Dry throat [Unknown]
  - Surgery [Unknown]

NARRATIVE: CASE EVENT DATE: 2021
